FAERS Safety Report 7064575-9 (Version None)
Quarter: 2010Q4

REPORT INFORMATION
  Report Type: 
  Country: None (occurrence: None)
  Receive Date: 20101022
  Receipt Date: 20101022
  Transmission Date: 20110411
  Serious: Yes (Other)
  Sender: FDA-Public Use
  Company Number: None

PATIENT
  Sex: Female

DRUGS (1)
  1. MIRENA [Suspect]

REACTIONS (5)
  - DIARRHOEA [None]
  - HAEMORRHAGE [None]
  - INFERTILITY FEMALE [None]
  - NAUSEA [None]
  - PELVIC INFLAMMATORY DISEASE [None]
